FAERS Safety Report 7180750-7 (Version None)
Quarter: 2010Q4

REPORT INFORMATION
  Report Type: 
  Country: None (occurrence: None)
  Receive Date: 20101221
  Receipt Date: 20101220
  Transmission Date: 20110411
  Serious: Yes (Other)
  Sender: FDA-Public Use
  Company Number: US-RB-019726-10

PATIENT
  Sex: Male

DRUGS (2)
  1. SUBOXONE [Suspect]
     Indication: DRUG DEPENDENCE
     Dosage: TAKING 3 DOSES PER DAY (DOSE UNKNOWN)
     Route: 065
  2. SUBOXONE [Suspect]
     Dosage: TAKING 0.5 DOSE PER DAY (DOSE UNKNOWN)
     Route: 065

REACTIONS (1)
  - HALLUCINATION, AUDITORY [None]
